FAERS Safety Report 15609529 (Version 1)
Quarter: 2018Q4

REPORT INFORMATION
  Report Type: Spontaneous
  Country: US (occurrence: US)
  Receive Date: 20181112
  Receipt Date: 20181112
  Transmission Date: 20190205
  Serious: No
  Sender: FDA-Public Use
  Company Number: US-009507513-1810USA013939

PATIENT
  Age: 57 Year
  Sex: Female

DRUGS (9)
  1. TRULICITY [Concomitant]
     Active Substance: DULAGLUTIDE
  2. LIPITOR [Concomitant]
     Active Substance: ATORVASTATIN CALCIUM
  3. VENLAFAXINE HYDROCHLORIDE. [Concomitant]
     Active Substance: VENLAFAXINE HYDROCHLORIDE
  4. GLIPIZIDE. [Concomitant]
     Active Substance: GLIPIZIDE
  5. METFORMIN [Concomitant]
     Active Substance: METFORMIN HYDROCHLORIDE
  6. ANAFRANIL [Concomitant]
     Active Substance: CLOMIPRAMINE HYDROCHLORIDE
  7. SIVEXTRO [Suspect]
     Active Substance: TEDIZOLID PHOSPHATE
     Route: 048
  8. LOSARTAN. [Concomitant]
     Active Substance: LOSARTAN
  9. LORAZEPAN (LORAZEPAM) [Concomitant]
     Active Substance: LORAZEPAM

REACTIONS (1)
  - Rash [Unknown]
